FAERS Safety Report 21748957 (Version 1)
Quarter: 2022Q4

REPORT INFORMATION
  Report Type: Report from Study
  Country: PR (occurrence: PR)
  Receive Date: 20221219
  Receipt Date: 20221219
  Transmission Date: 20230113
  Serious: No
  Sender: FDA-Public Use
  Company Number: PR-ABBVIE-4201697

PATIENT
  Age: 67 Year
  Sex: Male
  Weight: 117.93 kg

DRUGS (14)
  1. HUMIRA [Suspect]
     Active Substance: ADALIMUMAB
     Indication: Rheumatoid arthritis
     Dosage: FORM STRENGTH: 40MG
     Route: 058
     Dates: start: 2015
  2. FINASTERIDE [Concomitant]
     Active Substance: FINASTERIDE
     Indication: Prostatic disorder
     Dosage: FORM STRENGTH: 5MG
     Route: 048
     Dates: start: 2021
  3. ELIQUIS [Concomitant]
     Active Substance: APIXABAN
     Indication: Anticoagulant therapy
     Dosage: FORM STRENGTH: 5 MG?START DATE: 1 YEAR AND 3 MONTHS
     Route: 048
  4. FAMOTIDINE [Concomitant]
     Active Substance: FAMOTIDINE
     Indication: Product used for unknown indication
     Dosage: START DATE TEXT: OVER 1 YEAR AGO?FORM STRENGTH: 40MG
     Route: 048
  5. TAMSULOSIN [Concomitant]
     Active Substance: TAMSULOSIN
     Indication: Prostatic disorder
     Route: 048
     Dates: start: 2021
  6. METHOTREXATE [Concomitant]
     Active Substance: METHOTREXATE
     Indication: Rheumatoid arthritis
     Dosage: FORM STRENGTH: 2.5MG
     Route: 048
     Dates: start: 2015
  7. VALSARTAN [Concomitant]
     Active Substance: VALSARTAN
     Indication: Hypertension
     Dosage: START DATE TEXT: OVER 15 YEARS AGO ?FORM STRENGTH: 320MG
     Route: 048
  8. AMLODIPINE [Concomitant]
     Active Substance: AMLODIPINE BESYLATE
     Indication: Product used for unknown indication
     Dosage: FORM STRENGTH: 5MG
     Route: 048
     Dates: start: 202208
  9. HUMALOG [Concomitant]
     Active Substance: INSULIN LISPRO
     Indication: Diabetes mellitus
     Dates: start: 202209
  10. SULFAMETHOXAZOLE [Concomitant]
     Active Substance: SULFAMETHOXAZOLE
     Indication: Prostatic disorder
     Route: 048
     Dates: start: 202210
  11. DIGOXIN [Concomitant]
     Active Substance: DIGOXIN
     Indication: Hypertension
     Dosage: START DATE : OVER 5 YEARS AGO?FORM STRENGTH: 4 MG
     Route: 048
  12. FOLIC ACID [Concomitant]
     Active Substance: FOLIC ACID
     Indication: Supplementation therapy
     Dosage: FORM STRENGTH: 1MG
     Route: 048
  13. CARVEDILOL [Concomitant]
     Active Substance: CARVEDILOL
     Indication: Prostatic disorder
     Dosage: FORM STRENGTH: 12.5 MG?START DATE : 1 YEAR AND HALF AGO
     Route: 048
  14. ROSUVASTATIN [Concomitant]
     Active Substance: ROSUVASTATIN
     Indication: Product used for unknown indication
     Dosage: FORM STRENGTH: 20MG
     Route: 048
     Dates: start: 202208

REACTIONS (3)
  - Prostatic specific antigen increased [Not Recovered/Not Resolved]
  - Blood glucose increased [Recovering/Resolving]
  - Arthralgia [Not Recovered/Not Resolved]

NARRATIVE: CASE EVENT DATE: 20210101
